FAERS Safety Report 11677250 (Version 1)
Quarter: 2015Q4

REPORT INFORMATION
  Report Type: Spontaneous
  Country: US (occurrence: US)
  Receive Date: 20151028
  Receipt Date: 20151028
  Transmission Date: 20160304
  Serious: No
  Sender: FDA-Public Use
  Company Number: US-BIOCOMPATIBLES UK LTD-BTG00083

PATIENT
  Sex: Male

DRUGS (1)
  1. DIGIFAB [Suspect]
     Active Substance: OVINE DIGOXIN IMMUNE FAB
     Indication: TOXICITY TO VARIOUS AGENTS
     Dosage: 80 MG, SINGLE
     Route: 042
     Dates: start: 20130925, end: 20130925

REACTIONS (3)
  - Incorrect product storage [None]
  - No adverse event [Unknown]
  - Wrong technique in product usage process [Unknown]
